FAERS Safety Report 5011500-8 (Version None)
Quarter: 2006Q2

REPORT INFORMATION
  Report Type: 
  Country: None (occurrence: None)
  Receive Date: 20060524
  Receipt Date: 20060516
  Transmission Date: 20061013
  Serious: Yes (Hospitalization)
  Sender: FDA-Public Use
  Company Number: 200612062GDS

PATIENT
  Age: 90 Year
  Sex: Male

DRUGS (7)
  1. AVELOX [Suspect]
     Indication: RESPIRATORY DISORDER
     Dosage: 400 MG, QD, ORAL
     Route: 048
     Dates: start: 20060421, end: 20060426
  2. SELEPARINA [Concomitant]
  3. TALOFEN [Concomitant]
  4. LASIX [Concomitant]
  5. DEPONIT [Concomitant]
  6. ZESTRIL [Concomitant]
  7. BISOLVON [Concomitant]

REACTIONS (1)
  - ENTERITIS [None]
